FAERS Safety Report 11219973 (Version 2)
Quarter: 2015Q3

REPORT INFORMATION
  Report Type: Report from Study
  Country: US (occurrence: US)
  Receive Date: 20150625
  Receipt Date: 20150701
  Transmission Date: 20151125
  Serious: Yes (Death)
  Sender: FDA-Public Use
  Company Number: US-ABBVIE-15P-163-1414530-00

PATIENT
  Age: 86 Year
  Sex: Male

DRUGS (4)
  1. MARINOL [Suspect]
     Active Substance: DRONABINOL
     Indication: GASTRIC CANCER
  2. MORPHINE [Concomitant]
     Active Substance: MORPHINE
     Indication: PRODUCT USED FOR UNKNOWN INDICATION
  3. LORAZEPAM. [Concomitant]
     Active Substance: LORAZEPAM
     Indication: PRODUCT USED FOR UNKNOWN INDICATION
  4. MARINOL [Suspect]
     Active Substance: DRONABINOL
     Indication: LYMPHOMA
     Route: 065
     Dates: start: 2009, end: 20150618

REACTIONS (1)
  - Death [Fatal]

NARRATIVE: CASE EVENT DATE: 20150618
